FAERS Safety Report 9518804 (Version 1)
Quarter: 2013Q3

REPORT INFORMATION
  Report Type: Spontaneous
  Country: FR (occurrence: FR)
  Receive Date: 20130912
  Receipt Date: 20130912
  Transmission Date: 20140515
  Serious: Yes (Life-Threatening, Hospitalization, Disabling)
  Sender: FDA-Public Use
  Company Number: FR-AMGEN-FRASP2013064140

PATIENT
  Age: 55 Year
  Sex: Male

DRUGS (3)
  1. ENBREL [Suspect]
     Indication: PSORIASIS
     Dosage: 50 MG, WEEKLY
     Route: 058
     Dates: start: 200604, end: 200704
  2. HUMIRA [Suspect]
     Indication: PSORIASIS
     Dosage: 40 MG EVERY 2 WEEKS
     Route: 058
     Dates: end: 2006
  3. REMICADE [Suspect]
     Indication: PSORIASIS
     Dosage: 5 MG/KG, EVERY 8 WEEKS
     Route: 065
     Dates: start: 200704

REACTIONS (1)
  - Bladder cancer [Unknown]
